FAERS Safety Report 6659083-0 (Version None)
Quarter: 2010Q1

REPORT INFORMATION
  Report Type: 
  Country: None (occurrence: None)
  Receive Date: 20100330
  Receipt Date: 20100319
  Transmission Date: 20100710
  Serious: Yes (Other)
  Sender: FDA-Public Use
  Company Number: PHHY2010DE17676

PATIENT
  Sex: Female

DRUGS (1)
  1. EUCREAS [Suspect]
     Dosage: 1 DF, BID
     Route: 048
     Dates: start: 20090101

REACTIONS (4)
  - ARRHYTHMIA [None]
  - HYPERTENSIVE CRISIS [None]
  - SUPRAVENTRICULAR EXTRASYSTOLES [None]
  - TACHYCARDIA [None]
